FAERS Safety Report 24137470 (Version 1)
Quarter: 2024Q3

REPORT INFORMATION
  Report Type: Spontaneous
  Country: CN (occurrence: CN)
  Receive Date: 20240725
  Receipt Date: 20240725
  Transmission Date: 20241016
  Serious: Yes (Life-Threatening, Hospitalization, Other)
  Sender: PURDUE
  Company Number: CN-NAPPMUNDI-GBR-2024-0118299

PATIENT
  Age: 60 Year
  Sex: Male
  Weight: 60 kg

DRUGS (2)
  1. OXYCONTIN [Suspect]
     Active Substance: OXYCODONE HYDROCHLORIDE
     Indication: Cancer pain
     Dosage: 100 MILLIGRAM, Q12H
     Route: 048
     Dates: start: 20240208, end: 20240314
  2. MORPHINE HYDROCHLORIDE [Concomitant]
     Active Substance: MORPHINE HYDROCHLORIDE
     Indication: Cancer pain
     Dosage: 30 MILLIGRAM, DAILY
     Route: 048
     Dates: start: 20240208, end: 20240314

REACTIONS (6)
  - Confusional state [Recovering/Resolving]
  - Gaze palsy [Recovered/Resolved]
  - Miosis [Recovered/Resolved]
  - Pulse abnormal [Unknown]
  - Blood pressure increased [Recovering/Resolving]
  - Pupillary reflex impaired [Recovered/Resolved]

NARRATIVE: CASE EVENT DATE: 20240301
